FAERS Safety Report 5886250-6 (Version None)
Quarter: 2008Q3

REPORT INFORMATION
  Report Type: 
  Country: None (occurrence: None)
  Receive Date: 20080912
  Receipt Date: 20080901
  Transmission Date: 20090109
  Serious: Yes (Life-Threatening)
  Sender: FDA-Public Use
  Company Number: 004257

PATIENT
  Age: 53 Year
  Sex: Male

DRUGS (7)
  1. BUSULFEX [Suspect]
     Indication: STEM CELL TRANSPLANT
     Dosage: 12 ML, INTRAVENOUS; 24 ML, DAILY: INTRAVENOUS; DAILY DOSE; INTRAVENOUS
     Route: 042
     Dates: start: 20070901, end: 20070901
  2. BUSULFEX [Suspect]
     Indication: STEM CELL TRANSPLANT
     Dosage: 12 ML, INTRAVENOUS; 24 ML, DAILY: INTRAVENOUS; DAILY DOSE; INTRAVENOUS
     Route: 042
     Dates: start: 20070902, end: 20070902
  3. BUSULFEX [Suspect]
     Indication: STEM CELL TRANSPLANT
     Dosage: 12 ML, INTRAVENOUS; 24 ML, DAILY: INTRAVENOUS; DAILY DOSE; INTRAVENOUS
     Route: 042
     Dates: start: 20070903, end: 20070903
  4. FLUDARABINE PHOSPHATE [Concomitant]
  5. PHENYTOIN [Concomitant]
  6. METHOTREXATE [Concomitant]
  7. TACROLIMUS [Concomitant]

REACTIONS (11)
  - ACUTE GRAFT VERSUS HOST DISEASE [None]
  - ACUTE MYELOID LEUKAEMIA RECURRENT [None]
  - ANOREXIA [None]
  - BONE MARROW TRANSPLANT [None]
  - DIARRHOEA [None]
  - HEADACHE [None]
  - MALAISE [None]
  - NAUSEA [None]
  - PAIN IN EXTREMITY [None]
  - PLATELET COUNT DECREASED [None]
  - STOMATITIS [None]
